FAERS Safety Report 11362309 (Version 4)
Quarter: 2017Q3

REPORT INFORMATION
  Report Type: Spontaneous
  Country: CA (occurrence: CA)
  Receive Date: 20150810
  Receipt Date: 20170911
  Transmission Date: 20171127
  Serious: Yes (Death, Other)
  Sender: FDA-Public Use
  Company Number: CA-PFIZER INC-2015262927

PATIENT
  Age: 70 Year
  Sex: Male
  Weight: 105 kg

DRUGS (9)
  1. DEXAMETHASONE. [Concomitant]
     Active Substance: DEXAMETHASONE
     Indication: BLAST CRISIS IN MYELOGENOUS LEUKAEMIA
     Dosage: UNK
     Dates: end: 20150702
  2. FOLINIC ACID [Concomitant]
     Active Substance: LEUCOVORIN
     Indication: BLAST CRISIS IN MYELOGENOUS LEUKAEMIA
     Dosage: UNK
     Dates: end: 20150702
  3. DOXORUBICIN [Concomitant]
     Active Substance: DOXORUBICIN
     Indication: BLAST CRISIS IN MYELOGENOUS LEUKAEMIA
     Dosage: UNK
     Dates: end: 20150702
  4. METHOTREXATE. [Concomitant]
     Active Substance: METHOTREXATE
     Indication: BLAST CRISIS IN MYELOGENOUS LEUKAEMIA
     Dosage: UNK
     Dates: end: 20150702
  5. METHYLPREDNISOLONE. [Concomitant]
     Active Substance: METHYLPREDNISOLONE
     Indication: BLAST CRISIS IN MYELOGENOUS LEUKAEMIA
     Dosage: UNK
     Dates: end: 20150702
  6. CYTARABINE. [Concomitant]
     Active Substance: CYTARABINE
     Indication: BLAST CRISIS IN MYELOGENOUS LEUKAEMIA
     Dosage: UNK
     Dates: end: 20150702
  7. BOSULIF [Suspect]
     Active Substance: BOSUTINIB MONOHYDRATE
     Indication: BLAST CRISIS IN MYELOGENOUS LEUKAEMIA
     Dosage: 500 MG, 1 FULL CYCLE AND A COUPLE OF WEEKS INTO THE 2ND.
     Dates: start: 20150608, end: 20150713
  8. CYCLOPHOSPHAMIDE. [Concomitant]
     Active Substance: CYCLOPHOSPHAMIDE
     Indication: BLAST CRISIS IN MYELOGENOUS LEUKAEMIA
     Dosage: UNK
     Dates: end: 20150702
  9. VINCRISTINE [Concomitant]
     Active Substance: VINCRISTINE
     Indication: BLAST CRISIS IN MYELOGENOUS LEUKAEMIA
     Dosage: UNK
     Dates: end: 20150702

REACTIONS (4)
  - Abdominal pain [Unknown]
  - Incarcerated hernia [Unknown]
  - Neutropenic sepsis [Fatal]
  - Neutropenia [Not Recovered/Not Resolved]

NARRATIVE: CASE EVENT DATE: 20150708
